FAERS Safety Report 7639601-6 (Version None)
Quarter: 2011Q3

REPORT INFORMATION
  Report Type: 
  Country: None (occurrence: None)
  Receive Date: 20110721
  Receipt Date: 20110706
  Transmission Date: 20111222
  Serious: Yes (Hospitalization, Other)
  Sender: FDA-Public Use
  Company Number: ENT 2011-0073

PATIENT
  Age: 53 Year
  Sex: Female

DRUGS (99)
  1. ECONAZOLE NITRATE [Concomitant]
  2. HEPTAMINOL [Concomitant]
  3. EFFEXOR [Concomitant]
  4. XANAX [Concomitant]
  5. CEFUROXIME [Concomitant]
  6. DEPAKOTE [Concomitant]
  7. ELUDRIL [Concomitant]
  8. STALEVO 100 [Concomitant]
     Indication: PARKINSON'S DISEASE
     Dosage: 150 MG (1 DOSAGE FORMS,5 IN 1 D); 150 MG (1 DOASGE FORM,4 IN 1 D); 5 TABLETS PER DAY
     Route: 048
     Dates: start: 20090725
  9. STALEVO 100 [Concomitant]
     Indication: PARKINSON'S DISEASE
     Dosage: 150 MG (1 DOSAGE FORMS,5 IN 1 D); 150 MG (1 DOASGE FORM,4 IN 1 D); 5 TABLETS PER DAY
     Route: 048
     Dates: start: 20080827
  10. STALEVO 100 [Concomitant]
     Indication: PARKINSON'S DISEASE
     Dosage: 150 MG (1 DOSAGE FORMS,5 IN 1 D); 150 MG (1 DOASGE FORM,4 IN 1 D); 5 TABLETS PER DAY
     Route: 048
     Dates: start: 20081212
  11. STALEVO 100 [Concomitant]
     Indication: PARKINSON'S DISEASE
     Dosage: 150 MG (1 DOSAGE FORMS,5 IN 1 D); 150 MG (1 DOASGE FORM,4 IN 1 D); 5 TABLETS PER DAY
     Route: 048
     Dates: start: 20090105
  12. STALEVO 100 [Concomitant]
     Indication: PARKINSON'S DISEASE
     Dosage: 150 MG (1 DOSAGE FORMS,5 IN 1 D); 150 MG (1 DOASGE FORM,4 IN 1 D); 5 TABLETS PER DAY
     Route: 048
     Dates: start: 20091019
  13. STALEVO 100 [Concomitant]
     Indication: PARKINSON'S DISEASE
     Dosage: 150 MG (1 DOSAGE FORMS,5 IN 1 D); 150 MG (1 DOASGE FORM,4 IN 1 D); 5 TABLETS PER DAY
     Route: 048
     Dates: start: 20090216
  14. STALEVO 100 [Concomitant]
     Indication: PARKINSON'S DISEASE
     Dosage: 150 MG (1 DOSAGE FORMS,5 IN 1 D); 150 MG (1 DOASGE FORM,4 IN 1 D); 5 TABLETS PER DAY
     Route: 048
     Dates: start: 20080304
  15. STALEVO 100 [Concomitant]
     Indication: PARKINSON'S DISEASE
     Dosage: 150 MG (1 DOSAGE FORMS,5 IN 1 D); 150 MG (1 DOASGE FORM,4 IN 1 D); 5 TABLETS PER DAY
     Route: 048
     Dates: start: 20080530
  16. STALEVO 100 [Concomitant]
     Indication: PARKINSON'S DISEASE
     Dosage: 150 MG (1 DOSAGE FORMS,5 IN 1 D); 150 MG (1 DOASGE FORM,4 IN 1 D); 5 TABLETS PER DAY
     Route: 048
     Dates: start: 20090415
  17. STALEVO 100 [Concomitant]
     Indication: PARKINSON'S DISEASE
     Dosage: 150 MG (1 DOSAGE FORMS,5 IN 1 D); 150 MG (1 DOASGE FORM,4 IN 1 D); 5 TABLETS PER DAY
     Route: 048
     Dates: start: 20091219
  18. STALEVO 100 [Concomitant]
     Indication: PARKINSON'S DISEASE
     Dosage: 150 MG (1 DOSAGE FORMS,5 IN 1 D); 150 MG (1 DOASGE FORM,4 IN 1 D); 5 TABLETS PER DAY
     Route: 048
     Dates: start: 20091102
  19. STALEVO 100 [Concomitant]
     Indication: PARKINSON'S DISEASE
     Dosage: 150 MG (1 DOSAGE FORMS,5 IN 1 D); 150 MG (1 DOASGE FORM,4 IN 1 D); 5 TABLETS PER DAY
     Route: 048
     Dates: start: 20101101
  20. STALEVO 100 [Concomitant]
     Indication: PARKINSON'S DISEASE
     Dosage: 150 MG (1 DOSAGE FORMS,5 IN 1 D); 150 MG (1 DOASGE FORM,4 IN 1 D); 5 TABLETS PER DAY
     Route: 048
     Dates: start: 20090818
  21. STALEVO 100 [Concomitant]
     Indication: PARKINSON'S DISEASE
     Dosage: 150 MG (1 DOSAGE FORMS,5 IN 1 D); 150 MG (1 DOASGE FORM,4 IN 1 D); 5 TABLETS PER DAY
     Route: 048
     Dates: start: 20100302
  22. PERGOLIDE MESYLATE [Suspect]
     Dosage: 1.5 MG (0.5 MG,3 IN 1 D); 3 MG (1 MG,3 IN 1 D); 1 MG
     Dates: start: 20030905
  23. PERGOLIDE MESYLATE [Suspect]
     Dosage: 1.5 MG (0.5 MG,3 IN 1 D); 3 MG (1 MG,3 IN 1 D); 1 MG
     Dates: start: 20050123
  24. PERGOLIDE MESYLATE [Suspect]
     Dosage: 1.5 MG (0.5 MG,3 IN 1 D); 3 MG (1 MG,3 IN 1 D); 1 MG
     Dates: start: 20030201
  25. PERGOLIDE MESYLATE [Suspect]
     Dosage: 1.5 MG (0.5 MG,3 IN 1 D); 3 MG (1 MG,3 IN 1 D); 1 MG
     Dates: start: 20041021
  26. ATARAX [Concomitant]
  27. NECYRANE [Concomitant]
  28. ZOLPIDEM [Concomitant]
  29. MODOPAR (LEVODOPA) [Suspect]
     Indication: PARKINSON'S DISEASE
     Dosage: 125 MG DAILY; 2.5 DOSAGE FORM (0.5 DOSAGE FORM,5 IN 1 D); 1 IN THE MORNING, 1 IN THE EVENING (125 MG
     Route: 048
     Dates: start: 20090818
  30. MODOPAR (LEVODOPA) [Suspect]
     Indication: PARKINSON'S DISEASE
     Dosage: 125 MG DAILY; 2.5 DOSAGE FORM (0.5 DOSAGE FORM,5 IN 1 D); 1 IN THE MORNING, 1 IN THE EVENING (125 MG
     Route: 048
     Dates: start: 20070510
  31. MODOPAR (LEVODOPA) [Suspect]
     Indication: PARKINSON'S DISEASE
     Dosage: 125 MG DAILY; 2.5 DOSAGE FORM (0.5 DOSAGE FORM,5 IN 1 D); 1 IN THE MORNING, 1 IN THE EVENING (125 MG
     Route: 048
     Dates: start: 20080530
  32. MODOPAR (LEVODOPA) [Suspect]
     Indication: PARKINSON'S DISEASE
     Dosage: 125 MG DAILY; 2.5 DOSAGE FORM (0.5 DOSAGE FORM,5 IN 1 D); 1 IN THE MORNING, 1 IN THE EVENING (125 MG
     Route: 048
     Dates: start: 20080304
  33. MODOPAR (LEVODOPA) [Suspect]
     Indication: PARKINSON'S DISEASE
     Dosage: 125 MG DAILY; 2.5 DOSAGE FORM (0.5 DOSAGE FORM,5 IN 1 D); 1 IN THE MORNING, 1 IN THE EVENING (125 MG
     Route: 048
     Dates: start: 20090505
  34. MODOPAR (LEVODOPA) [Suspect]
     Indication: PARKINSON'S DISEASE
     Dosage: 125 MG DAILY; 2.5 DOSAGE FORM (0.5 DOSAGE FORM,5 IN 1 D); 1 IN THE MORNING, 1 IN THE EVENING (125 MG
     Route: 048
     Dates: start: 20080625
  35. MODOPAR (LEVODOPA) [Suspect]
     Indication: PARKINSON'S DISEASE
     Dosage: 125 MG DAILY; 2.5 DOSAGE FORM (0.5 DOSAGE FORM,5 IN 1 D); 1 IN THE MORNING, 1 IN THE EVENING (125 MG
     Route: 048
     Dates: start: 20090725
  36. MODOPAR (LEVODOPA) [Suspect]
     Indication: PARKINSON'S DISEASE
     Dosage: 125 MG DAILY; 2.5 DOSAGE FORM (0.5 DOSAGE FORM,5 IN 1 D); 1 IN THE MORNING, 1 IN THE EVENING (125 MG
     Route: 048
     Dates: start: 20020322
  37. MODOPAR (LEVODOPA) [Suspect]
     Indication: PARKINSON'S DISEASE
     Dosage: 125 MG DAILY; 2.5 DOSAGE FORM (0.5 DOSAGE FORM,5 IN 1 D); 1 IN THE MORNING, 1 IN THE EVENING (125 MG
     Route: 048
     Dates: start: 20040901
  38. MODOPAR (LEVODOPA) [Suspect]
     Indication: PARKINSON'S DISEASE
     Dosage: 125 MG DAILY; 2.5 DOSAGE FORM (0.5 DOSAGE FORM,5 IN 1 D); 1 IN THE MORNING, 1 IN THE EVENING (125 MG
     Route: 048
     Dates: start: 20070830
  39. MODOPAR (LEVODOPA) [Suspect]
     Indication: PARKINSON'S DISEASE
     Dosage: 125 MG DAILY; 2.5 DOSAGE FORM (0.5 DOSAGE FORM,5 IN 1 D); 1 IN THE MORNING, 1 IN THE EVENING (125 MG
     Route: 048
     Dates: start: 20090602
  40. MODOPAR (LEVODOPA) [Suspect]
     Indication: PARKINSON'S DISEASE
     Dosage: 125 MG DAILY; 2.5 DOSAGE FORM (0.5 DOSAGE FORM,5 IN 1 D); 1 IN THE MORNING, 1 IN THE EVENING (125 MG
     Route: 048
     Dates: start: 20091102
  41. MODOPAR (LEVODOPA) [Suspect]
     Indication: PARKINSON'S DISEASE
     Dosage: 125 MG DAILY; 2.5 DOSAGE FORM (0.5 DOSAGE FORM,5 IN 1 D); 1 IN THE MORNING, 1 IN THE EVENING (125 MG
     Route: 048
     Dates: start: 20060622
  42. MODOPAR (LEVODOPA) [Suspect]
     Indication: PARKINSON'S DISEASE
     Dosage: 125 MG DAILY; 2.5 DOSAGE FORM (0.5 DOSAGE FORM,5 IN 1 D); 1 IN THE MORNING, 1 IN THE EVENING (125 MG
     Route: 048
     Dates: start: 20080304
  43. MODOPAR (LEVODOPA) [Suspect]
     Indication: PARKINSON'S DISEASE
     Dosage: 125 MG DAILY; 2.5 DOSAGE FORM (0.5 DOSAGE FORM,5 IN 1 D); 1 IN THE MORNING, 1 IN THE EVENING (125 MG
     Route: 048
     Dates: start: 20080530
  44. MODOPAR (LEVODOPA) [Suspect]
     Indication: PARKINSON'S DISEASE
     Dosage: 125 MG DAILY; 2.5 DOSAGE FORM (0.5 DOSAGE FORM,5 IN 1 D); 1 IN THE MORNING, 1 IN THE EVENING (125 MG
     Route: 048
     Dates: start: 20090818
  45. MODOPAR (LEVODOPA) [Suspect]
     Indication: PARKINSON'S DISEASE
     Dosage: 125 MG DAILY; 2.5 DOSAGE FORM (0.5 DOSAGE FORM,5 IN 1 D); 1 IN THE MORNING, 1 IN THE EVENING (125 MG
     Route: 048
     Dates: start: 20100302
  46. MODOPAR (LEVODOPA) [Suspect]
     Indication: PARKINSON'S DISEASE
     Dosage: 125 MG DAILY; 2.5 DOSAGE FORM (0.5 DOSAGE FORM,5 IN 1 D); 1 IN THE MORNING, 1 IN THE EVENING (125 MG
     Route: 048
     Dates: start: 20090101
  47. MODOPAR (LEVODOPA) [Suspect]
     Indication: PARKINSON'S DISEASE
     Dosage: 125 MG DAILY; 2.5 DOSAGE FORM (0.5 DOSAGE FORM,5 IN 1 D); 1 IN THE MORNING, 1 IN THE EVENING (125 MG
     Route: 048
     Dates: start: 20060622
  48. MODOPAR (LEVODOPA) [Suspect]
     Indication: PARKINSON'S DISEASE
     Dosage: 125 MG DAILY; 2.5 DOSAGE FORM (0.5 DOSAGE FORM,5 IN 1 D); 1 IN THE MORNING, 1 IN THE EVENING (125 MG
     Route: 048
     Dates: start: 20071205
  49. MODOPAR (LEVODOPA) [Suspect]
     Indication: PARKINSON'S DISEASE
     Dosage: 125 MG DAILY; 2.5 DOSAGE FORM (0.5 DOSAGE FORM,5 IN 1 D); 1 IN THE MORNING, 1 IN THE EVENING (125 MG
     Route: 048
     Dates: start: 20080915
  50. MODOPAR (LEVODOPA) [Suspect]
     Indication: PARKINSON'S DISEASE
     Dosage: 125 MG DAILY; 2.5 DOSAGE FORM (0.5 DOSAGE FORM,5 IN 1 D); 1 IN THE MORNING, 1 IN THE EVENING (125 MG
     Route: 048
     Dates: start: 20081029
  51. MODOPAR (LEVODOPA) [Suspect]
     Indication: PARKINSON'S DISEASE
     Dosage: 125 MG DAILY; 2.5 DOSAGE FORM (0.5 DOSAGE FORM,5 IN 1 D); 1 IN THE MORNING, 1 IN THE EVENING (125 MG
     Route: 048
     Dates: start: 20090302
  52. MODOPAR (LEVODOPA) [Suspect]
     Indication: PARKINSON'S DISEASE
     Dosage: 125 MG DAILY; 2.5 DOSAGE FORM (0.5 DOSAGE FORM,5 IN 1 D); 1 IN THE MORNING, 1 IN THE EVENING (125 MG
     Route: 048
     Dates: start: 20090430
  53. MODOPAR (LEVODOPA) [Suspect]
     Indication: PARKINSON'S DISEASE
     Dosage: 125 MG DAILY; 2.5 DOSAGE FORM (0.5 DOSAGE FORM,5 IN 1 D); 1 IN THE MORNING, 1 IN THE EVENING (125 MG
     Route: 048
     Dates: start: 20041104
  54. MODOPAR (LEVODOPA) [Suspect]
     Indication: PARKINSON'S DISEASE
     Dosage: 125 MG DAILY; 2.5 DOSAGE FORM (0.5 DOSAGE FORM,5 IN 1 D); 1 IN THE MORNING, 1 IN THE EVENING (125 MG
     Route: 048
     Dates: start: 20081115
  55. MODOPAR (LEVODOPA) [Suspect]
     Indication: PARKINSON'S DISEASE
     Dosage: 125 MG DAILY; 2.5 DOSAGE FORM (0.5 DOSAGE FORM,5 IN 1 D); 1 IN THE MORNING, 1 IN THE EVENING (125 MG
     Route: 048
     Dates: start: 20090927
  56. MODOPAR (LEVODOPA) [Suspect]
     Indication: PARKINSON'S DISEASE
     Dosage: 125 MG DAILY; 2.5 DOSAGE FORM (0.5 DOSAGE FORM,5 IN 1 D); 1 IN THE MORNING, 1 IN THE EVENING (125 MG
     Route: 048
     Dates: start: 20070510
  57. MODOPAR (LEVODOPA) [Suspect]
     Indication: PARKINSON'S DISEASE
     Dosage: 125 MG DAILY; 2.5 DOSAGE FORM (0.5 DOSAGE FORM,5 IN 1 D); 1 IN THE MORNING, 1 IN THE EVENING (125 MG
     Route: 048
     Dates: start: 20020219
  58. MODOPAR (LEVODOPA) [Suspect]
     Indication: PARKINSON'S DISEASE
     Dosage: 125 MG DAILY; 2.5 DOSAGE FORM (0.5 DOSAGE FORM,5 IN 1 D); 1 IN THE MORNING, 1 IN THE EVENING (125 MG
     Route: 048
     Dates: start: 20080206
  59. MODOPAR (LEVODOPA) [Suspect]
     Indication: PARKINSON'S DISEASE
     Dosage: 125 MG DAILY; 2.5 DOSAGE FORM (0.5 DOSAGE FORM,5 IN 1 D); 1 IN THE MORNING, 1 IN THE EVENING (125 MG
     Route: 048
     Dates: start: 20080530
  60. MODOPAR (LEVODOPA) [Suspect]
     Indication: PARKINSON'S DISEASE
     Dosage: 125 MG DAILY; 2.5 DOSAGE FORM (0.5 DOSAGE FORM,5 IN 1 D); 1 IN THE MORNING, 1 IN THE EVENING (125 MG
     Route: 048
     Dates: start: 20090505
  61. MODOPAR (LEVODOPA) [Suspect]
     Indication: PARKINSON'S DISEASE
     Dosage: 125 MG DAILY; 2.5 DOSAGE FORM (0.5 DOSAGE FORM,5 IN 1 D); 1 IN THE MORNING, 1 IN THE EVENING (125 MG
     Route: 048
     Dates: start: 20090917
  62. MODOPAR (LEVODOPA) [Suspect]
     Indication: PARKINSON'S DISEASE
     Dosage: 125 MG DAILY; 2.5 DOSAGE FORM (0.5 DOSAGE FORM,5 IN 1 D); 1 IN THE MORNING, 1 IN THE EVENING (125 MG
     Route: 048
     Dates: start: 20090406
  63. MODOPAR (LEVODOPA) [Suspect]
     Indication: PARKINSON'S DISEASE
     Dosage: 125 MG DAILY; 2.5 DOSAGE FORM (0.5 DOSAGE FORM,5 IN 1 D); 1 IN THE MORNING, 1 IN THE EVENING (125 MG
     Route: 048
     Dates: start: 20090725
  64. MODOPAR (LEVODOPA) [Suspect]
     Indication: PARKINSON'S DISEASE
     Dosage: 125 MG DAILY; 2.5 DOSAGE FORM (0.5 DOSAGE FORM,5 IN 1 D); 1 IN THE MORNING, 1 IN THE EVENING (125 MG
     Route: 048
     Dates: start: 20100727
  65. MODOPAR (LEVODOPA) [Suspect]
     Indication: PARKINSON'S DISEASE
     Dosage: 125 MG DAILY; 2.5 DOSAGE FORM (0.5 DOSAGE FORM,5 IN 1 D); 1 IN THE MORNING, 1 IN THE EVENING (125 MG
     Route: 048
     Dates: start: 20020219
  66. MODOPAR (LEVODOPA) [Suspect]
     Indication: PARKINSON'S DISEASE
     Dosage: 125 MG DAILY; 2.5 DOSAGE FORM (0.5 DOSAGE FORM,5 IN 1 D); 1 IN THE MORNING, 1 IN THE EVENING (125 MG
     Route: 048
     Dates: start: 20080530
  67. MODOPAR (LEVODOPA) [Suspect]
     Indication: PARKINSON'S DISEASE
     Dosage: 125 MG DAILY; 2.5 DOSAGE FORM (0.5 DOSAGE FORM,5 IN 1 D); 1 IN THE MORNING, 1 IN THE EVENING (125 MG
     Route: 048
     Dates: start: 20091102
  68. MODOPAR (LEVODOPA) [Suspect]
     Indication: PARKINSON'S DISEASE
     Dosage: 125 MG DAILY; 2.5 DOSAGE FORM (0.5 DOSAGE FORM,5 IN 1 D); 1 IN THE MORNING, 1 IN THE EVENING (125 MG
     Route: 048
     Dates: start: 20020813
  69. MODOPAR (LEVODOPA) [Suspect]
     Indication: PARKINSON'S DISEASE
     Dosage: 125 MG DAILY; 2.5 DOSAGE FORM (0.5 DOSAGE FORM,5 IN 1 D); 1 IN THE MORNING, 1 IN THE EVENING (125 MG
     Route: 048
     Dates: start: 20041214
  70. MODOPAR (LEVODOPA) [Suspect]
     Indication: PARKINSON'S DISEASE
     Dosage: 125 MG DAILY; 2.5 DOSAGE FORM (0.5 DOSAGE FORM,5 IN 1 D); 1 IN THE MORNING, 1 IN THE EVENING (125 MG
     Route: 048
     Dates: start: 20080715
  71. MODOPAR (LEVODOPA) [Suspect]
     Indication: PARKINSON'S DISEASE
     Dosage: 125 MG DAILY; 2.5 DOSAGE FORM (0.5 DOSAGE FORM,5 IN 1 D); 1 IN THE MORNING, 1 IN THE EVENING (125 MG
     Route: 048
     Dates: start: 19950101
  72. MODOPAR (LEVODOPA) [Suspect]
     Indication: PARKINSON'S DISEASE
     Dosage: 125 MG DAILY; 2.5 DOSAGE FORM (0.5 DOSAGE FORM,5 IN 1 D); 1 IN THE MORNING, 1 IN THE EVENING (125 MG
     Route: 048
     Dates: start: 20070109
  73. MODOPAR (LEVODOPA) [Suspect]
     Indication: PARKINSON'S DISEASE
     Dosage: 125 MG DAILY; 2.5 DOSAGE FORM (0.5 DOSAGE FORM,5 IN 1 D); 1 IN THE MORNING, 1 IN THE EVENING (125 MG
     Route: 048
     Dates: start: 20080304
  74. MODOPAR (LEVODOPA) [Suspect]
     Indication: PARKINSON'S DISEASE
     Dosage: 125 MG DAILY; 2.5 DOSAGE FORM (0.5 DOSAGE FORM,5 IN 1 D); 1 IN THE MORNING, 1 IN THE EVENING (125 MG
     Route: 048
     Dates: start: 20080530
  75. MODOPAR (LEVODOPA) [Suspect]
     Indication: PARKINSON'S DISEASE
     Dosage: 125 MG DAILY; 2.5 DOSAGE FORM (0.5 DOSAGE FORM,5 IN 1 D); 1 IN THE MORNING, 1 IN THE EVENING (125 MG
     Route: 048
     Dates: start: 20020219
  76. MODOPAR (LEVODOPA) [Suspect]
     Indication: PARKINSON'S DISEASE
     Dosage: 125 MG DAILY; 2.5 DOSAGE FORM (0.5 DOSAGE FORM,5 IN 1 D); 1 IN THE MORNING, 1 IN THE EVENING (125 MG
     Route: 048
     Dates: start: 20030905
  77. MODOPAR (LEVODOPA) [Suspect]
     Indication: PARKINSON'S DISEASE
     Dosage: 125 MG DAILY; 2.5 DOSAGE FORM (0.5 DOSAGE FORM,5 IN 1 D); 1 IN THE MORNING, 1 IN THE EVENING (125 MG
     Route: 048
     Dates: start: 20090216
  78. LYSOPAINE [Concomitant]
  79. INTETRIX [Concomitant]
  80. ATHYMIL [Concomitant]
  81. CARBOCISTEINE [Concomitant]
  82. KETOCONAZOLE [Concomitant]
  83. PRAZEPAM [Concomitant]
  84. GAVISCON [Concomitant]
  85. AMOXICILLIN TRIHYDRATE [Concomitant]
  86. LOXAPINE HCL [Concomitant]
  87. LORAZEPAM [Concomitant]
  88. COMTAN [Suspect]
     Indication: PARKINSON'S DISEASE
     Dosage: 1 TABLET PER DAY IN THE MORNING FOR 10 DAYS AND THEN TWICE PER DAY; 0.5 TABLET 5 TIMES PER DAY; 0.5
     Route: 048
     Dates: start: 20070830
  89. COMTAN [Suspect]
     Indication: PARKINSON'S DISEASE
     Dosage: 1 TABLET PER DAY IN THE MORNING FOR 10 DAYS AND THEN TWICE PER DAY; 0.5 TABLET 5 TIMES PER DAY; 0.5
     Route: 048
     Dates: start: 20050123, end: 20050301
  90. COMTAN [Suspect]
     Indication: PARKINSON'S DISEASE
     Dosage: 1 TABLET PER DAY IN THE MORNING FOR 10 DAYS AND THEN TWICE PER DAY; 0.5 TABLET 5 TIMES PER DAY; 0.5
     Route: 048
     Dates: start: 20060629
  91. COMTAN [Suspect]
     Indication: PARKINSON'S DISEASE
     Dosage: 1 TABLET PER DAY IN THE MORNING FOR 10 DAYS AND THEN TWICE PER DAY; 0.5 TABLET 5 TIMES PER DAY; 0.5
     Route: 048
     Dates: start: 20080105
  92. COMTAN [Suspect]
     Indication: PARKINSON'S DISEASE
     Dosage: 1 TABLET PER DAY IN THE MORNING FOR 10 DAYS AND THEN TWICE PER DAY; 0.5 TABLET 5 TIMES PER DAY; 0.5
     Route: 048
     Dates: start: 20071205
  93. ACETAMINOPHEN AND TRAMADOL HCL [Concomitant]
  94. IMOVANE [Concomitant]
  95. IBUPROFEN [Concomitant]
  96. LEVONORGESTREL AND ETHINYL ESTRADIOL [Concomitant]
  97. ZOLOFT [Concomitant]
  98. PRAMIPEXOLE DIHYDROCHLORIDE [Suspect]
     Dosage: 2.1 MG (0.7 MG,3 IN 1 D)
     Dates: start: 20060622
  99. ACETAMINOPHEN [Concomitant]

REACTIONS (19)
  - WEIGHT INCREASED [None]
  - CHROMATURIA [None]
  - IRRITABILITY [None]
  - SUICIDE ATTEMPT [None]
  - OBSESSIVE-COMPULSIVE DISORDER [None]
  - PSYCHOMOTOR HYPERACTIVITY [None]
  - MUSCULOSKELETAL PAIN [None]
  - ANXIETY [None]
  - DYSPNOEA [None]
  - INTENTIONAL DRUG MISUSE [None]
  - C-REACTIVE PROTEIN INCREASED [None]
  - NAUSEA [None]
  - OVERDOSE [None]
  - AKINESIA [None]
  - FALL [None]
  - DYSTHYMIC DISORDER [None]
  - AGITATION [None]
  - DYSKINESIA [None]
  - RED BLOOD CELL SEDIMENTATION RATE INCREASED [None]
